FAERS Safety Report 10204691 (Version 2)
Quarter: 2014Q2

REPORT INFORMATION
  Report Type: Spontaneous
  Country: JP (occurrence: JP)
  Receive Date: 20140529
  Receipt Date: 20140618
  Transmission Date: 20141212
  Serious: No
  Sender: FDA-Public Use
  Company Number: JP-JNJFOC-20140512771

PATIENT
  Age: 76 Year
  Sex: Male
  Weight: 62 kg

DRUGS (7)
  1. XARELTO [Suspect]
     Indication: CEREBROVASCULAR ACCIDENT PROPHYLAXIS
     Route: 048
     Dates: start: 20131026, end: 20140317
  2. XARELTO [Suspect]
     Indication: ATRIAL FIBRILLATION
     Route: 048
     Dates: start: 20131026, end: 20140317
  3. FEBUXOSTAT [Concomitant]
     Route: 048
  4. MICAMLO [Concomitant]
     Indication: HYPERTENSION
     Route: 048
     Dates: start: 20131027
  5. ARTIST [Concomitant]
     Indication: CARDIAC FAILURE CHRONIC
     Route: 048
     Dates: start: 20131027
  6. BAYASPIRIN [Concomitant]
     Indication: CORONARY ARTERY BYPASS
     Route: 048
     Dates: start: 20131027
  7. ALOSITOL [Concomitant]
     Indication: HYPERURICAEMIA
     Route: 048
     Dates: end: 20131206

REACTIONS (1)
  - Blood creatinine increased [Recovered/Resolved]
